FAERS Safety Report 8718249 (Version 3)
Quarter: 2012Q4

REPORT INFORMATION
  Report Type: 
  Country: BR (occurrence: BR)
  Receive Date: 20120810
  Receipt Date: 20121112
  Transmission Date: 20130627
  Serious: Yes (Disabling, Other)
  Sender: FDA-Public Use
  Company Number: BR-ELI_LILLY_AND_COMPANY-BR201208001833

PATIENT
  Age: 72 Year
  Sex: Female
  Weight: 31 kg

DRUGS (4)
  1. FORTEO [Suspect]
     Indication: OSTEOPOROSIS
     Dosage: 20 ug, qd
     Route: 058
     Dates: start: 2005, end: 20120725
  2. IRON IN COMBINATION WITH FOLIC ACID [Concomitant]
     Dosage: UNK, unknown
     Route: 065
  3. POTASSIUM [Concomitant]
     Dosage: UNK, unknown
     Route: 065
  4. CALCITONIN [Concomitant]
     Dosage: UNK, unknown
     Route: 065

REACTIONS (3)
  - Fall [Not Recovered/Not Resolved]
  - Pelvic fracture [Not Recovered/Not Resolved]
  - Gait disturbance [Not Recovered/Not Resolved]
